FAERS Safety Report 8160028-5 (Version None)
Quarter: 2012Q1

REPORT INFORMATION
  Report Type: 
  Country: None (occurrence: None)
  Receive Date: 20120223
  Receipt Date: 20120216
  Transmission Date: 20120608
  Serious: Yes (Hospitalization)
  Sender: FDA-Public Use
  Company Number: FR-GLAXOSMITHKLINE-B0781889A

PATIENT
  Age: 81 Year
  Sex: Female

DRUGS (3)
  1. ARIXTRA [Suspect]
     Indication: THROMBOPHLEBITIS SUPERFICIAL
     Dosage: 7.5MG PER DAY
     Route: 058
     Dates: start: 20111027, end: 20111121
  2. ACETAMINOPHEN [Concomitant]
     Dosage: 4G PER DAY
     Route: 048
     Dates: start: 20111118, end: 20111126
  3. PYOSTACINE [Concomitant]
     Route: 048
     Dates: start: 20111101, end: 20111101

REACTIONS (6)
  - PERONEAL NERVE PALSY [None]
  - OVERDOSE [None]
  - HAEMATOMA [None]
  - ANAEMIA [None]
  - SKIN NECROSIS [None]
  - INCORRECT DRUG ADMINISTRATION DURATION [None]
